FAERS Safety Report 7107401-1 (Version None)
Quarter: 2010Q4

REPORT INFORMATION
  Report Type: 
  Country: None (occurrence: None)
  Receive Date: 20101111
  Receipt Date: 20101111
  Transmission Date: 20110411
  Serious: No
  Sender: FDA-Public Use
  Company Number: None

PATIENT
  Age: 64 Year
  Sex: Female
  Weight: 113.3993 kg

DRUGS (1)
  1. VICTOZA [Suspect]
     Indication: DIABETES MELLITUS
     Dosage: 1.6 ONCE PER DAY EPIDURAL
     Route: 008
     Dates: start: 20101010, end: 20101110

REACTIONS (2)
  - DYSPNOEA [None]
  - FATIGUE [None]
